FAERS Safety Report 4775598-4 (Version None)
Quarter: 2005Q3

REPORT INFORMATION
  Report Type: 
  Country: None (occurrence: None)
  Receive Date: 20050922
  Receipt Date: 20050830
  Transmission Date: 20060218
  Serious: Yes (Hospitalization)
  Sender: FDA-Public Use
  Company Number: JP-SOLVAY-00305002808

PATIENT
  Age: 7642 Day
  Sex: Male
  Weight: 59 kg

DRUGS (24)
  1. LUVOX [Suspect]
     Indication: AFFECTIVE DISORDER
     Dosage: DAILY DOSE: 100 MILLIGRAM(S)
     Route: 048
     Dates: start: 20050501, end: 20050101
  2. LUVOX [Suspect]
     Dosage: DAILY DOSE: 50 MILLIGRAM(S)
     Route: 048
     Dates: start: 20050725, end: 20050813
  3. LUVOX [Suspect]
     Dosage: DAILY DOSE: 50 MILLIGRAM(S)
     Route: 048
     Dates: start: 20050815
  4. RISPERDAL [Concomitant]
     Indication: HALLUCINATION
     Dosage: DAILY DOSE: 2 MILLIGRAM(S)
     Route: 048
     Dates: start: 20050501, end: 20050610
  5. RISPERDAL [Concomitant]
     Dosage: DAILY DOSE: 1 MILLIGRAM(S)
     Route: 048
     Dates: start: 20050610, end: 20050725
  6. TASMOLIN [Concomitant]
     Indication: HALLUCINATION
     Dosage: DAILY DOSE: 2 MILLIGRAM(S)
     Route: 048
     Dates: start: 20050501, end: 20050610
  7. TASMOLIN [Concomitant]
     Dosage: DAILY DOSE: 1 MILLIGRAM(S)
     Route: 048
     Dates: start: 20050610, end: 20050725
  8. SOLANAX [Concomitant]
     Indication: HALLUCINATION
     Dosage: DAILY DOSE: .4 MILLIGRAM(S)
     Route: 048
     Dates: start: 20050501, end: 20050604
  9. SOLANAX [Concomitant]
     Dosage: DAILY DOSE: 1.6 MILLIGRAM(S)
     Route: 048
     Dates: start: 20050604, end: 20050813
  10. SOLANAX [Concomitant]
     Dosage: DAILY DOSE: 1.6 MILLIGRAM(S)
     Route: 048
     Dates: start: 20050815
  11. LENDORMIN [Concomitant]
     Indication: AFFECTIVE DISORDER
     Dosage: DAILY DOSE: 1 DOSAGE FORM
     Route: 048
     Dates: start: 20050501, end: 20050604
  12. VEGETAMIN-B [Concomitant]
     Indication: HALLUCINATION
     Dosage: DAILY DOSE: 1 DOSAGE FORM
     Route: 048
     Dates: start: 20050604, end: 20050813
  13. VEGETAMIN-B [Concomitant]
     Dosage: DAILY DOSE: 1 DOSAGE FORM
     Route: 048
     Dates: start: 20050815
  14. DORAL [Concomitant]
     Indication: AFFECTIVE DISORDER
     Dosage: DAILY DOSE: 15 MILLIGRAM(S)
     Route: 048
     Dates: start: 20050604, end: 20050813
  15. DORAL [Concomitant]
     Dosage: DAILY DOSE: 15 MILLIGRAM(S)
     Route: 048
     Dates: start: 20050815
  16. MYSLEE [Concomitant]
     Indication: AFFECTIVE DISORDER
     Dosage: DAILY DOSE: 10 MILLIGRAM(S)
     Route: 048
     Dates: start: 20050610, end: 20050713
  17. MYSLEE [Concomitant]
     Dosage: DAILY DOSE: 5 MILLIGRAM(S)
     Route: 048
     Dates: start: 20050713, end: 20050813
  18. MYSLEE [Concomitant]
     Dosage: DAILY DOSE: 5 MILLIGRAM(S)
     Route: 048
     Dates: start: 20050815
  19. PURSENNID [Concomitant]
     Indication: CONSTIPATION
     Dosage: DAILY DOSE: 1 DOSAGE FORM
     Route: 048
     Dates: start: 20050610, end: 20050813
  20. PURSENNID [Concomitant]
     Dosage: DAILY DOSE: 1 DOSAGE FORM
     Route: 048
     Dates: start: 20050815
  21. POLYRHITIN [Concomitant]
     Indication: HEPATITIS
     Dosage: DAILY DOSE: 2 DOSAGE FORM
     Route: 048
     Dates: start: 20050711, end: 20050813
  22. POLYRHITIN [Concomitant]
     Dosage: DAILY DOSE: 2 DOSAGE FORM
     Route: 048
     Dates: start: 20050815
  23. LOPEMIN [Concomitant]
     Indication: IRRITABLE BOWEL SYNDROME
     Dosage: DAILY DOSE: 1 DOSAGE FORM
     Route: 048
     Dates: start: 20050725, end: 20050813
  24. LOPEMIN [Concomitant]
     Dosage: DAILY DOSE: 1 DOSAGE FORM
     Route: 048
     Dates: start: 20050815

REACTIONS (4)
  - BLOOD CREATINE PHOSPHOKINASE INCREASED [None]
  - CONVULSION [None]
  - PYREXIA [None]
  - VOMITING [None]
